FAERS Safety Report 9665494 (Version 1)
Quarter: 2013Q4

REPORT INFORMATION
  Report Type: Spontaneous
  Country: US (occurrence: US)
  Receive Date: 20131104
  Receipt Date: 20131104
  Transmission Date: 20140711
  Serious: No
  Sender: FDA-Public Use
  Company Number: US-PFIZER INC-2013311751

PATIENT
  Age: 62 Year
  Sex: Female

DRUGS (2)
  1. CENTRUM SILVER WOMEN^S 50+ [Suspect]
     Dosage: UNK,1X/DAY
  2. ZOLOFT [Suspect]
     Indication: BIPOLAR DISORDER
     Dosage: UNK

REACTIONS (2)
  - Drug ineffective [Unknown]
  - Energy increased [Unknown]
